FAERS Safety Report 8573137 (Version 3)
Quarter: 2012Q4

REPORT INFORMATION
  Report Type: 
  Country: AU (occurrence: AU)
  Receive Date: 20120522
  Receipt Date: 20120928
  Transmission Date: 20130627
  Serious: Yes (Hospitalization, Disabling, Other)
  Sender: FDA-Public Use
  Company Number: PHHY2011AU116326

PATIENT
  Age: 84 Year
  Sex: Female

DRUGS (28)
  1. ACLASTA [Suspect]
     Dosage: 5 mg, UNK
     Route: 042
     Dates: start: 20090401
  2. ATACAND [Concomitant]
     Dosage: 4 mg tablet, 1 daily
     Route: 048
  3. KLACID                                  /IRE/ [Concomitant]
     Dosage: 250 mg tablet, 1 daily with meals
     Route: 048
  4. LANOXIN PG [Concomitant]
     Dosage: 62.5 ug tablet, 1 in the morning
     Route: 048
  5. LASIX [Concomitant]
     Dosage: 40 mg tablet, 1 in the morning
     Route: 048
  6. LIPEX [Concomitant]
     Dosage: 10 mg tablet, 1 before bed
     Route: 048
  7. OSMOTICALLY ACTING LAXATIVES/OSMOLAX [Concomitant]
     Dosage: 1 Scoop daily, as directed.
  8. OSTELIN [Concomitant]
     Dosage: 1000 IU, 1 daily as directed
  9. PANADOL [Concomitant]
     Dosage: 665 mg tablet, 2 three times per day as directed.
     Route: 048
  10. POLY-TEARS [Concomitant]
     Dosage: 0.3-0.1%, 4 times a day as directed
  11. DABIGATRAN [Concomitant]
     Dosage: 110 mg, 1 twice a day
  12. PROGOUT [Concomitant]
     Dosage: 100 mg, tablet, 1 daily as directed
     Route: 048
  13. RHINOCORT AQUA [Concomitant]
     Dosage: 64 ug/dose, 2 sprays twice a day
  14. SERETIDE MDI [Concomitant]
     Dosage: 1 DF twice a day
  15. SINGULAIR [Concomitant]
     Dosage: 10 mg, tablet, 1 daily as directed
     Route: 048
  16. SLOW-K [Concomitant]
     Dosage: 600 mg, tablet, 2 daily
     Route: 048
  17. SPIRIVA [Concomitant]
     Dosage: 18 ug, 1 daily as directed
  18. VENTOLIN DISKUS [Concomitant]
     Dosage: 100 ug/dose, 2 puffs every 4 hours
  19. VENTOLIN NEBULES PF [Concomitant]
     Dosage: 5 mg/2.5 ml, every 6 hrs
  20. XALATAN [Concomitant]
     Dosage: 50 ug/ml, 2 drops before bed
  21. FLUVAX [Concomitant]
     Dates: start: 20060308, end: 20060308
  22. FLUVAX [Concomitant]
     Dates: start: 20080311, end: 20080311
  23. FLUVAX [Concomitant]
     Dates: start: 20090325, end: 20090325
  24. FLUVAX [Concomitant]
     Dates: start: 20110328
  25. FLUVAX [Concomitant]
     Dates: start: 20120323
  26. VAXIGRIP [Concomitant]
     Dates: start: 20120403, end: 20120403
  27. PANVAX H1N1 [Concomitant]
     Dates: start: 20100303, end: 20100303
  28. INFLUVAC [Concomitant]
     Dates: start: 20100421, end: 20100421

REACTIONS (4)
  - Bronchiectasis [Not Recovered/Not Resolved]
  - Viral upper respiratory tract infection [Unknown]
  - Lower respiratory tract infection [Unknown]
  - Influenza [Recovered/Resolved]
